FAERS Safety Report 20779818 (Version 2)
Quarter: 2022Q2

REPORT INFORMATION
  Report Type: Report from Study
  Country: ES (occurrence: ES)
  Receive Date: 20220503
  Receipt Date: 20220531
  Transmission Date: 20220720
  Serious: Yes (Other)
  Sender: FDA-Public Use
  Company Number: ES-BAYER-2022A058277

PATIENT

DRUGS (2)
  1. SERTRALINE [Interacting]
     Active Substance: SERTRALINE HYDROCHLORIDE
     Dosage: UNK
  2. RIVAROXABAN [Interacting]
     Active Substance: RIVAROXABAN
     Dosage: UNK

REACTIONS (2)
  - Drug interaction [Unknown]
  - Haemorrhage [Unknown]
